FAERS Safety Report 14137644 (Version 1)
Quarter: 2017Q4

REPORT INFORMATION
  Report Type: Spontaneous
  Country: US (occurrence: US)
  Receive Date: 20171027
  Receipt Date: 20171027
  Transmission Date: 20180321
  Serious: No
  Sender: FDA-Public Use
  Company Number: US-LNK INTERNATIONAL, INC.-2031725

PATIENT
  Sex: Male

DRUGS (1)
  1. CVS ASPIRIN [Suspect]
     Active Substance: ASPIRIN

REACTIONS (1)
  - Accidental exposure to product by child [None]
